FAERS Safety Report 16021308 (Version 1)
Quarter: 2019Q2

REPORT INFORMATION
  Report Type: Spontaneous
  Country: US (occurrence: US)
  Receive Date: 20190228
  Receipt Date: 20190228
  Transmission Date: 20190711
  Serious: Yes (Other)
  Sender: FDA-Public Use
  Company Number: None

PATIENT
  Age: 57 Year
  Sex: Male
  Weight: 119.25 kg

DRUGS (1)
  1. NASACORT [Suspect]
     Active Substance: TRIAMCINOLONE ACETONIDE
     Indication: HYPERSENSITIVITY
     Dosage: ?          OTHER ROUTE:NASAL SPRAY?
     Dates: start: 20181212, end: 20190204

REACTIONS (1)
  - Anosmia [None]

NARRATIVE: CASE EVENT DATE: 20190107
